FAERS Safety Report 4788945-4 (Version None)
Quarter: 2005Q4

REPORT INFORMATION
  Report Type: 
  Country: None (occurrence: None)
  Receive Date: 20051004
  Receipt Date: 20050923
  Transmission Date: 20060501
  Serious: Yes (Other)
  Sender: FDA-Public Use
  Company Number: 2005133905

PATIENT
  Age: 53 Year
  Sex: Male

DRUGS (2)
  1. BEXTRA [Suspect]
     Indication: PAIN
  2. VIOXX [Suspect]
     Indication: ILL-DEFINED DISORDER

REACTIONS (3)
  - CARDIOVASCULAR DISORDER [None]
  - INJURY [None]
  - THROMBOSIS [None]
